FAERS Safety Report 9415463 (Version 1)
Quarter: 2013Q3

REPORT INFORMATION
  Report Type: Spontaneous
  Country: US (occurrence: US)
  Receive Date: 20130723
  Receipt Date: 20130723
  Transmission Date: 20140515
  Serious: No
  Sender: FDA-Public Use
  Company Number: US-PFIZER INC-2013213405

PATIENT
  Age: 49 Year
  Sex: Female
  Weight: 68.03 kg

DRUGS (2)
  1. EFFEXOR XR [Suspect]
     Indication: ANXIETY
     Dosage: 150 MG DAILY
     Dates: start: 200310
  2. EFFEXOR XR [Suspect]
     Dosage: 150 MG DAILY

REACTIONS (4)
  - Product taste abnormal [Unknown]
  - Product packaging issue [Unknown]
  - Dysgeusia [Unknown]
  - Dizziness [Unknown]
